FAERS Safety Report 8395589-4 (Version None)
Quarter: 2012Q2

REPORT INFORMATION
  Report Type: 
  Country: None (occurrence: None)
  Receive Date: 20120530
  Receipt Date: 20111012
  Transmission Date: 20120825
  Serious: No
  Sender: FDA-Public Use
  Company Number: US-GLAXOSMITHKLINE-A0948834A

PATIENT
  Age: 63 Year
  Sex: Female

DRUGS (8)
  1. FOLIC ACID [Concomitant]
  2. PROTONIX [Concomitant]
  3. ADVAIR DISKUS 100/50 [Concomitant]
  4. METOPROLOL TARTRATE [Concomitant]
  5. FLONASE [Concomitant]
  6. SPIRIVA [Concomitant]
  7. VENTOLIN [Suspect]
     Indication: CHRONIC OBSTRUCTIVE PULMONARY DISEASE
     Dosage: 1PUFF TWICE PER DAY
     Route: 055
     Dates: start: 20110323, end: 20110325
  8. SINGULAIR [Concomitant]

REACTIONS (4)
  - ORAL PAIN [None]
  - PRURITUS GENERALISED [None]
  - APHTHOUS STOMATITIS [None]
  - RASH [None]
